FAERS Safety Report 11704547 (Version 4)
Quarter: 2015Q4

REPORT INFORMATION
  Report Type: Spontaneous
  Country: AR (occurrence: AR)
  Receive Date: 20151106
  Receipt Date: 20151209
  Transmission Date: 20160304
  Serious: Yes (Other)
  Sender: FDA-Public Use
  Company Number: AR-SA-2015SA174378

PATIENT
  Age: 27 Year
  Sex: Female

DRUGS (1)
  1. FABRAZYME [Suspect]
     Active Substance: AGALSIDASE BETA
     Indication: FABRY^S DISEASE
     Route: 041
     Dates: start: 201301

REACTIONS (7)
  - Rhinitis [Unknown]
  - Vertigo [Recovering/Resolving]
  - Tinnitus [Recovering/Resolving]
  - Upper respiratory tract infection [Unknown]
  - Herpes zoster [Recovering/Resolving]
  - Sinus disorder [Unknown]
  - Pain [Unknown]

NARRATIVE: CASE EVENT DATE: 201307
